FAERS Safety Report 10387342 (Version 1)
Quarter: 2014Q3

REPORT INFORMATION
  Report Type: Spontaneous
  Country: US (occurrence: US)
  Receive Date: 20140815
  Receipt Date: 20140815
  Transmission Date: 20150326
  Serious: Yes (Other)
  Sender: FDA-Public Use
  Company Number: US-ACTAVIS-2014-17474

PATIENT
  Age: 68 Year
  Sex: Female

DRUGS (2)
  1. GLUCOSE (UNKNOWN) [Suspect]
     Active Substance: DEXTROSE
     Indication: HYPOGLYCAEMIA
     Dosage: UNK
     Route: 042
  2. PREDNISONE (WATSON LABORATORIES) [Suspect]
     Active Substance: PREDNISONE
     Indication: HYPOGLYCAEMIA
     Dosage: UNK, HIGH-DOSE
     Route: 065

REACTIONS (1)
  - Pulmonary oedema [Unknown]
